FAERS Safety Report 6525268-7 (Version None)
Quarter: 2010Q1

REPORT INFORMATION
  Report Type: 
  Country: None (occurrence: None)
  Receive Date: 20100104
  Receipt Date: 20091222
  Transmission Date: 20100710
  Serious: Yes (Other)
  Sender: FDA-Public Use
  Company Number: PL-PFIZER INC-2009305641

PATIENT
  Sex: Male

DRUGS (1)
  1. NEURONTIN [Suspect]
     Indication: EPILEPSY
     Dosage: 600 MG, 2X/DAY
     Route: 048
     Dates: start: 20090401

REACTIONS (4)
  - DISEASE PROGRESSION [None]
  - PROTEIN URINE PRESENT [None]
  - PULMONARY FIBROSIS [None]
  - RED BLOOD CELLS URINE POSITIVE [None]
